FAERS Safety Report 6282339-0 (Version None)
Quarter: 2009Q3

REPORT INFORMATION
  Report Type: 
  Country: None (occurrence: None)
  Receive Date: 20090722
  Receipt Date: 20090722
  Transmission Date: 20100115
  Serious: Yes (Life-Threatening)
  Sender: FDA-Public Use
  Company Number: None

PATIENT
  Sex: Female
  Weight: 60 kg

DRUGS (2)
  1. LAMOTRIGINE [Suspect]
     Indication: EPILEPSY
     Dosage: 100 MG BID PO
     Route: 048
  2. LAMOTRIGINE [Suspect]
     Dosage: 75 MG BID PO
     Route: 048

REACTIONS (1)
  - CONVULSION [None]
